FAERS Safety Report 7422081 (Version 2)
Quarter: 2017Q3

REPORT INFORMATION
  Report Type: Spontaneous
  Country: GB (occurrence: GB)
  Receive Date: 20100616
  Receipt Date: 20170914
  Transmission Date: 20171128
  Serious: Yes (Hospitalization, Disabling, Other)
  Sender: FDA-Public Use
  Company Number: GB-PFIZER INC-2010071537

PATIENT
  Age: 70 Year
  Sex: Male

DRUGS (11)
  1. MEROPENEM. [Suspect]
     Active Substance: MEROPENEM
     Dosage: 2 G, 2X/DAY
     Route: 042
  2. TEICOPLANIN [Interacting]
     Active Substance: TEICOPLANIN
     Dosage: 400 MG, 1X/DAY
     Route: 030
  3. CLOPIDOGREL [Interacting]
     Active Substance: CLOPIDOGREL BISULFATE
     Dosage: 75 MG, DAILY
  4. CIPROFLOXACIN. [Interacting]
     Active Substance: CIPROFLOXACIN
     Indication: CHALAZION
     Dosage: 750 MG, 2X/DAY
     Route: 048
  5. ASPIRIN /00002701/ [Interacting]
     Active Substance: ASPIRIN
     Dosage: 75 MG, DAILY
  6. WARFARIN [Interacting]
     Active Substance: WARFARIN
     Indication: PULMONARY EMBOLISM
     Dosage: UNK
  7. CLOPIDOGREL [Interacting]
     Active Substance: CLOPIDOGREL BISULFATE
     Indication: CHEST PAIN
     Dosage: 300 MG, DAILY
  8. ASPIRIN /00002701/ [Interacting]
     Active Substance: ASPIRIN
     Dosage: 300 MG, DAILY
  9. METRONIDAZOLE. [Interacting]
     Active Substance: METRONIDAZOLE
     Dosage: 400 MG, 3X/DAY
     Route: 048
  10. ERYTHROMYCIN. [Interacting]
     Active Substance: ERYTHROMYCIN
     Dosage: 250 MG, UNK
     Route: 048
  11. WARFARIN [Interacting]
     Active Substance: WARFARIN
     Indication: PULMONARY EMBOLISM

REACTIONS (9)
  - Nausea [Unknown]
  - Headache [Unknown]
  - International normalised ratio increased [Recovered/Resolved]
  - Drug interaction [Not Recovered/Not Resolved]
  - Intraocular pressure increased [Unknown]
  - Eye pain [Recovered/Resolved with Sequelae]
  - Pyrexia [Unknown]
  - Hyphaema [Not Recovered/Not Resolved]
  - Decreased appetite [Unknown]
